FAERS Safety Report 6505823-0 (Version None)
Quarter: 2009Q4

REPORT INFORMATION
  Report Type: 
  Country: None (occurrence: None)
  Receive Date: 20091218
  Receipt Date: 20091208
  Transmission Date: 20100525
  Serious: Yes (Other)
  Sender: FDA-Public Use
  Company Number: US-ASTRAZENECA-2009SE30901

PATIENT
  Age: 84 Year
  Sex: Female

DRUGS (6)
  1. PRILOSEC [Suspect]
     Route: 048
     Dates: end: 20091101
  2. PRILOSEC OTC [Suspect]
     Route: 048
     Dates: start: 20030615, end: 20091115
  3. PLAVIX [Suspect]
     Indication: CEREBROVASCULAR ACCIDENT
     Route: 048
  4. COUMADIN [Concomitant]
     Dates: start: 20030101
  5. PROTONIX [Concomitant]
  6. PHARMACIA [Concomitant]

REACTIONS (7)
  - ABDOMINAL PAIN UPPER [None]
  - CONTUSION [None]
  - DYSPEPSIA [None]
  - EPISTAXIS [None]
  - NAUSEA [None]
  - SKIN BURNING SENSATION [None]
  - THROMBOSIS [None]
